FAERS Safety Report 4492971-2 (Version None)
Quarter: 2004Q3

REPORT INFORMATION
  Report Type: 
  Country: None (occurrence: None)
  Receive Date: 20040921
  Receipt Date: 20040301
  Transmission Date: 20050211
  Serious: Yes (Hospitalization)
  Sender: FDA-Public Use
  Company Number: 163-20785-04030168 (0)

PATIENT
  Age: 71 Year
  Sex: Male
  Weight: 73.2 kg

DRUGS (8)
  1. THALOMID [Suspect]
     Indication: ACUTE MYELOID LEUKAEMIA
     Dosage: 100 MG, DAILY, ORAL
     Route: 048
     Dates: start: 20030411, end: 20030417
  2. FLUDARABINE (FLUDARABINE) (UNKNOWN) [Suspect]
     Indication: ACUTE MYELOID LEUKAEMIA
     Dosage: 28 MG, DAILY, INTRAVENOUS
     Route: 042
     Dates: start: 20030409, end: 20030413
  3. CARBOPLATIN [Suspect]
     Indication: ACUTE MYELOID LEUKAEMIA
     Dosage: 200 X 5 DOSES, DAILY, INTRAVENOUS
     Route: 042
     Dates: start: 20030409, end: 20030413
  4. TOPOTECAN (TOPOTECAN) (UNKNOWN) [Suspect]
     Indication: ACUTE MYELOID LEUKAEMIA
     Dosage: 31.6 MG TIMES THREE, INTRAVENOUS
     Route: 042
     Dates: start: 20030414, end: 20030417
  5. VALTREX [Concomitant]
  6. FLUCONAZOLE [Concomitant]
  7. CIPRO [Concomitant]
  8. FLAGYL [Concomitant]

REACTIONS (4)
  - FEBRILE NEUTROPENIA [None]
  - PLATELET COUNT DECREASED [None]
  - STAPHYLOCOCCAL INFECTION [None]
  - WHITE BLOOD CELL COUNT DECREASED [None]
